FAERS Safety Report 11528214 (Version 2)
Quarter: 2015Q4

REPORT INFORMATION
  Report Type: Spontaneous
  Country: JP (occurrence: JP)
  Receive Date: 20150921
  Receipt Date: 20151215
  Transmission Date: 20160304
  Serious: Yes (Death, Life-Threatening, Hospitalization, Other)
  Sender: FDA-Public Use
  Company Number: JP-ACCORD-033738

PATIENT
  Age: 55 Year
  Sex: Male

DRUGS (3)
  1. DOCETAXEL. [Suspect]
     Active Substance: DOCETAXEL
     Indication: NASOPHARYNGEAL CANCER
     Dosage: DTX: 60 MG/M2 X 1 DAY
  2. CISPLATIN. [Suspect]
     Active Substance: CISPLATIN
     Indication: NASOPHARYNGEAL CANCER
     Dosage: DOSE: 60 MG/M2 X 1 DAY
  3. FLUOROURACIL. [Suspect]
     Active Substance: FLUOROURACIL
     Indication: NASOPHARYNGEAL CANCER
     Dosage: 600 MG/M2 X 5 DAYS

REACTIONS (8)
  - Pneumonia staphylococcal [Fatal]
  - Acute respiratory distress syndrome [Fatal]
  - Enteritis [Fatal]
  - Stomatitis [Unknown]
  - Cytomegalovirus infection [Unknown]
  - Febrile neutropenia [Fatal]
  - Shock [Fatal]
  - Sepsis [Unknown]
